FAERS Safety Report 7361447-7 (Version None)
Quarter: 2011Q1

REPORT INFORMATION
  Report Type: 
  Country: None (occurrence: None)
  Receive Date: 20110318
  Receipt Date: 20110303
  Transmission Date: 20110831
  Serious: Yes (Hospitalization, Other)
  Sender: FDA-Public Use
  Company Number: PHEH2010US03421

PATIENT
  Sex: Female
  Weight: 131.52 kg

DRUGS (28)
  1. HYDROCODIN [Concomitant]
  2. FELDENE [Concomitant]
  3. TRIPHASIL-21 [Concomitant]
  4. FERROUS SULFATE TAB [Concomitant]
     Indication: ANAEMIA
  5. TYLENOL-500 [Concomitant]
  6. VITAMIN D [Concomitant]
  7. INDOMETHACIN [Concomitant]
  8. CIMETIDINE [Concomitant]
     Dosage: 400 MG, QHS
  9. ADRIAMYCIN PFS [Concomitant]
  10. ASPIRIN [Concomitant]
     Dosage: 9-12 DAILY IN DIVIDED DOSES WITH FOOD
  11. AMOXICILLIN [Concomitant]
  12. VINCRISTINE [Concomitant]
     Route: 042
  13. TRAZODONE HCL [Concomitant]
  14. ZESTRIL [Concomitant]
     Indication: HYPERTENSION
     Dosage: 5 MG DAILY
  15. IBUPROFEN [Concomitant]
  16. RITUXAN [Concomitant]
  17. PROVERA [Concomitant]
     Dosage: 10 MG PER DAY
  18. NAPROSYN [Concomitant]
  19. ANACID [Concomitant]
  20. KYTRIL [Concomitant]
     Route: 042
  21. OXYCODONE HCL [Concomitant]
  22. AREDIA [Suspect]
     Dosage: UNK
     Dates: start: 20041004
  23. IRON [Concomitant]
     Dosage: 2 TABLET PER DAY
     Route: 048
  24. BENADRYL ^PFIZER WARNER-LAMBERT^ [Concomitant]
  25. ZOLOFT [Concomitant]
  26. LISINOPRIL [Concomitant]
     Dosage: 1 DF, QD
     Route: 048
  27. DECADRON [Concomitant]
     Route: 042
  28. DOXORUBICIN HCL [Concomitant]
     Route: 042

REACTIONS (50)
  - BLOOD IMMUNOGLOBULIN M INCREASED [None]
  - NASAL CONGESTION [None]
  - INSOMNIA [None]
  - OEDEMA PERIPHERAL [None]
  - SINUS DISORDER [None]
  - ARRHYTHMIA [None]
  - DENTAL CARIES [None]
  - NON-HODGKIN'S LYMPHOMA [None]
  - PAIN [None]
  - ANXIETY [None]
  - UPPER RESPIRATORY TRACT INFECTION [None]
  - OROPHARYNGEAL PAIN [None]
  - CONSTIPATION [None]
  - ARTHRALGIA [None]
  - NAUSEA [None]
  - DECREASED APPETITE [None]
  - FIBROMYALGIA [None]
  - B-CELL LYMPHOMA [None]
  - INJURY [None]
  - ANHEDONIA [None]
  - WHITE BLOOD CELL COUNT INCREASED [None]
  - MUSCULOSKELETAL PAIN [None]
  - KYPHOSIS [None]
  - TOOTH INFECTION [None]
  - WALDENSTROM'S MACROGLOBULINAEMIA [None]
  - DISABILITY [None]
  - ARTHRITIS [None]
  - BURSITIS [None]
  - OSTEOARTHRITIS [None]
  - RENAL DISORDER [None]
  - DRY SKIN [None]
  - ABSCESS [None]
  - PULPITIS DENTAL [None]
  - PRODUCTIVE COUGH [None]
  - SINUS TACHYCARDIA [None]
  - FATIGUE [None]
  - PAIN IN JAW [None]
  - PLATELET COUNT INCREASED [None]
  - LIMB DISCOMFORT [None]
  - EARLY SATIETY [None]
  - BACK PAIN [None]
  - NEUROPATHY PERIPHERAL [None]
  - MULTIPLE INJURIES [None]
  - OSTEONECROSIS OF JAW [None]
  - SWELLING [None]
  - LOOSE TOOTH [None]
  - CHEST DISCOMFORT [None]
  - WEIGHT FLUCTUATION [None]
  - HYPOKALAEMIA [None]
  - NASAL POLYPS [None]
